FAERS Safety Report 5401635-X (Version None)
Quarter: 2007Q3

REPORT INFORMATION
  Report Type: 
  Country: None (occurrence: None)
  Receive Date: 20070731
  Receipt Date: 20070604
  Transmission Date: 20080115
  Serious: Yes (Disabling, Other)
  Sender: FDA-Public Use
  Company Number: US-PURDUE-USA_2007_0027941

PATIENT
  Sex: Female
  Weight: 122 kg

DRUGS (5)
  1. OXYCONTIN [Suspect]
     Indication: PAIN
     Dosage: UNK MG, SEE TEXT
     Dates: start: 19990201
  2. DILAUDID [Concomitant]
     Dosage: 2 MG, UNK
  3. PERCOCET [Concomitant]
     Dosage: UNK, SEE TEXT
  4. WARFARIN SODIUM [Concomitant]
     Dosage: 2 MG, UNK
  5. ENDOCET [Concomitant]

REACTIONS (10)
  - AMNESIA [None]
  - DELUSION OF REFERENCE [None]
  - DRUG DEPENDENCE [None]
  - FLASHBACK [None]
  - HOSTILITY [None]
  - INJURY [None]
  - PERSONALITY CHANGE [None]
  - SPEECH DISORDER [None]
  - THINKING ABNORMAL [None]
  - WHEELCHAIR USER [None]
